FAERS Safety Report 17334125 (Version 1)
Quarter: 2020Q1

REPORT INFORMATION
  Report Type: Spontaneous
  Country: GB (occurrence: GB)
  Receive Date: 20200128
  Receipt Date: 20200128
  Transmission Date: 20200409
  Serious: Yes (Disabling, Other)
  Sender: FDA-Public Use
  Company Number: GB-TEVA-2020-GB-1174206

PATIENT
  Age: 41 Year
  Sex: Female
  Weight: 69.85 kg

DRUGS (3)
  1. LAMOTRIGINE. [Suspect]
     Active Substance: LAMOTRIGINE
     Indication: EPILEPSY
     Dosage: 25 -75MGS
     Route: 048
     Dates: start: 20180801, end: 20190115
  2. BRIVIACT [Suspect]
     Active Substance: BRIVARACETAM
     Route: 065
  3. LEVOTHYROXINE. [Concomitant]
     Active Substance: LEVOTHYROXINE
     Dates: start: 20100601

REACTIONS (19)
  - Lethargy [Unknown]
  - Loss of consciousness [Unknown]
  - Migraine [Not Recovered/Not Resolved]
  - Malaise [Not Recovered/Not Resolved]
  - Skin discolouration [Not Recovered/Not Resolved]
  - Aggression [Not Recovered/Not Resolved]
  - Depression [Not Recovered/Not Resolved]
  - Palindromic rheumatism [Unknown]
  - Sleep terror [Not Recovered/Not Resolved]
  - Focal dyscognitive seizures [Unknown]
  - Joint stiffness [Not Recovered/Not Resolved]
  - Muscle twitching [Unknown]
  - Anxiety [Not Recovered/Not Resolved]
  - Eye movement disorder [Unknown]
  - Hemiplegia [Not Recovered/Not Resolved]
  - Personality change [Unknown]
  - Nausea [Not Recovered/Not Resolved]
  - Cognitive disorder [Unknown]
  - Staring [Unknown]

NARRATIVE: CASE EVENT DATE: 20180815
